FAERS Safety Report 21242927 (Version 4)
Quarter: 2022Q3

REPORT INFORMATION
  Report Type: Spontaneous
  Country: US (occurrence: US)
  Receive Date: 20220823
  Receipt Date: 20220926
  Transmission Date: 20221026
  Serious: Yes (Other)
  Sender: FDA-Public Use
  Company Number: US-PFIZER INC-202201074951

PATIENT
  Age: 64 Year
  Sex: Female

DRUGS (17)
  1. IBRANCE [Suspect]
     Active Substance: PALBOCICLIB
     Dosage: 75 MG, CYCLIC (75MG DAILY FOR 21 DAYS FOLLOWED BY 7 DAYS REST)
     Route: 048
     Dates: start: 20220810
  2. AMOXICILLIN [Concomitant]
     Active Substance: AMOXICILLIN
     Dosage: UNK
  3. LINEZOLID [Concomitant]
     Active Substance: LINEZOLID
     Dosage: UNK
  4. VERZENIO [Concomitant]
     Active Substance: ABEMACICLIB
     Dosage: UNK
  5. CALCITRIOL [Concomitant]
     Active Substance: CALCITRIOL
  6. PANTOPRAZOLE SODIUM [Concomitant]
     Active Substance: PANTOPRAZOLE SODIUM
  7. NIFEDIPINE EXTENDED RELEASE TABLETS (III) [Concomitant]
  8. MAGNESIUM [Concomitant]
     Active Substance: MAGNESIUM
  9. GABAPENTIN [Concomitant]
     Active Substance: GABAPENTIN
  10. IRON [Concomitant]
     Active Substance: IRON
  11. XGEVA [Concomitant]
     Active Substance: DENOSUMAB
  12. CLONIDINE [Concomitant]
     Active Substance: CLONIDINE
  13. CARVEDILOL [Concomitant]
     Active Substance: CARVEDILOL
  14. ESCITALOPRAM OXALATE [Concomitant]
     Active Substance: ESCITALOPRAM OXALATE
  15. ZOLPIDEM TARTRATE [Concomitant]
     Active Substance: ZOLPIDEM TARTRATE
  16. VITAMIN D2 [Concomitant]
     Active Substance: ERGOCALCIFEROL
  17. ANASTROZOLE [Concomitant]
     Active Substance: ANASTROZOLE

REACTIONS (8)
  - Endodontic procedure [Recovered/Resolved]
  - Chest tube removal [Unknown]
  - Oral pain [Recovering/Resolving]
  - Infection [Unknown]
  - Pleural effusion [Recovered/Resolved]
  - Hot flush [Recovered/Resolved]
  - COVID-19 [Recovered/Resolved]
  - Bacterial infection [Unknown]

NARRATIVE: CASE EVENT DATE: 20220101
